APPROVED DRUG PRODUCT: OXYCODONE AND ACETAMINOPHEN
Active Ingredient: ACETAMINOPHEN; OXYCODONE HYDROCHLORIDE
Strength: 500MG;7.5MG
Dosage Form/Route: TABLET;ORAL
Application: A040550 | Product #001
Applicant: MALLINCKRODT INC
Approved: Jun 30, 2004 | RLD: No | RS: No | Type: DISCN